FAERS Safety Report 9425266 (Version 1)
Quarter: 2013Q3

REPORT INFORMATION
  Report Type: Spontaneous
  Country: GR (occurrence: GR)
  Receive Date: 20130729
  Receipt Date: 20130729
  Transmission Date: 20140515
  Serious: Yes (Other)
  Sender: FDA-Public Use
  Company Number: GR-PFIZER INC-2013207226

PATIENT
  Age: 22 Year
  Sex: Female

DRUGS (6)
  1. LINEZOLID [Suspect]
     Indication: TUBERCULOSIS
     Dosage: 600 MG, 2X/DAY
  2. RIFABUTIN [Suspect]
     Indication: TUBERCULOSIS
     Dosage: 300 MG
  3. MOXIFLOXACIN [Suspect]
     Indication: TUBERCULOSIS
     Dosage: 400 MG, I.E. 9.5 MG/ KG
  4. ETHIONAMIDE [Suspect]
     Indication: TUBERCULOSIS
     Dosage: 250 MG, 3X/DAY (I.E. 18 MG/KG)
     Route: 030
  5. AMIKACIN [Suspect]
     Indication: TUBERCULOSIS
     Dosage: 750 MG, I.E. 18 MG/KG
     Route: 030
  6. IMIPENEM, CILASTATIN [Suspect]
     Indication: TUBERCULOSIS
     Dosage: 500 MG X 3

REACTIONS (4)
  - Pancytopenia [Recovering/Resolving]
  - Neurotoxicity [Recovering/Resolving]
  - Off label use [Unknown]
  - Therapeutic response unexpected [Unknown]
